FAERS Safety Report 8457505-6 (Version None)
Quarter: 2012Q2

REPORT INFORMATION
  Report Type: 
  Country: None (occurrence: None)
  Receive Date: 20120622
  Receipt Date: 20120616
  Transmission Date: 20120825
  Serious: Yes (Hospitalization, Other)
  Sender: FDA-Public Use
  Company Number: US-AMGEN-USASP2012030424

PATIENT
  Age: 79 Year
  Sex: Male
  Weight: 71.474 kg

DRUGS (6)
  1. ASPIRIN [Concomitant]
     Dosage: 81 MG, UNK
     Route: 048
  2. ISORDIL [Concomitant]
     Dosage: 10 MG, UNK
     Route: 048
  3. NPLATE [Suspect]
     Indication: IDIOPATHIC THROMBOCYTOPENIC PURPURA
     Dosage: 72 MUG, QWK
     Route: 058
     Dates: start: 20090625, end: 20120220
  4. FISH OIL [Concomitant]
     Route: 048
  5. PLAVIX [Concomitant]
  6. PLENDIL [Concomitant]

REACTIONS (5)
  - LEUKOCYTOSIS [None]
  - MYELODYSPLASTIC SYNDROME [None]
  - PLATELET COUNT DECREASED [None]
  - ANAEMIA [None]
  - CONFUSIONAL STATE [None]
